FAERS Safety Report 11615226 (Version 2)
Quarter: 2015Q4

REPORT INFORMATION
  Report Type: Spontaneous
  Country: US (occurrence: US)
  Receive Date: 20151009
  Receipt Date: 20151019
  Transmission Date: 20160304
  Serious: No
  Sender: FDA-Public Use
  Company Number: US-PFIZER INC-2015321345

PATIENT
  Age: 55 Year
  Sex: Female

DRUGS (2)
  1. EMBEDA [Suspect]
     Active Substance: MORPHINE SULFATE\NALTREXONE HYDROCHLORIDE
     Indication: PAIN
     Dosage: (60-2.4 MG), 2X/DAY
     Dates: start: 201509
  2. EMBEDA [Suspect]
     Active Substance: MORPHINE SULFATE\NALTREXONE HYDROCHLORIDE
     Dosage: (20-0.8), 2X/DAY
     Dates: start: 201509

REACTIONS (3)
  - Vomiting [Unknown]
  - Migraine [Unknown]
  - Drug ineffective [Unknown]
